FAERS Safety Report 25734959 (Version 3)
Quarter: 2025Q4

REPORT INFORMATION
  Report Type: Report from Study
  Country: US (occurrence: US)
  Receive Date: 20250828
  Receipt Date: 20251114
  Transmission Date: 20260117
  Serious: Yes (Death, Other)
  Sender: ALEXION PHARMACEUTICALS
  Company Number: US-AstraZeneca-CH-00939069A

PATIENT
  Age: 86 Year
  Sex: Male
  Weight: 46.8 kg

DRUGS (11)
  1. OLAPARIB [Suspect]
     Active Substance: OLAPARIB
     Dosage: 300 MILLIGRAM, BID
  2. CRESTOR [Suspect]
     Active Substance: ROSUVASTATIN CALCIUM
     Route: 065
  3. DIAZEPAM [Concomitant]
     Active Substance: DIAZEPAM
     Route: 065
  4. FINASTERIDE [Concomitant]
     Active Substance: FINASTERIDE
     Route: 065
  5. GABAPENTIN [Concomitant]
     Active Substance: GABAPENTIN
     Route: 065
  6. SERTRALINE [Concomitant]
     Active Substance: SERTRALINE HYDROCHLORIDE
     Route: 065
  7. TAMSULOSIN [Concomitant]
     Active Substance: TAMSULOSIN
     Route: 065
  8. VITAMINS [Concomitant]
     Active Substance: VITAMINS
     Route: 065
  9. COLACE [Concomitant]
     Active Substance: DOCUSATE SODIUM
     Route: 065
  10. VITAMIN D3 [Concomitant]
     Active Substance: CHOLECALCIFEROL
     Route: 065
  11. VITAMIN C [Concomitant]
     Active Substance: ASCORBIC ACID
     Route: 065

REACTIONS (48)
  - Colon cancer [Fatal]
  - Hyperlipidaemia [Fatal]
  - Benign prostatic hyperplasia [Fatal]
  - Neuropathy peripheral [Fatal]
  - Metastases to lung [Fatal]
  - Colorectal adenocarcinoma [Unknown]
  - Myocardial ischaemia [Unknown]
  - Eye irritation [Unknown]
  - Blood sodium abnormal [Unknown]
  - Blood urea abnormal [Unknown]
  - Blood creatinine abnormal [Unknown]
  - Protein total normal [Unknown]
  - Blood albumin abnormal [Unknown]
  - Blood calcium abnormal [Unknown]
  - Red blood cell abnormality [Unknown]
  - Haemoglobin abnormal [Unknown]
  - Haematocrit abnormal [Unknown]
  - Red cell distribution width increased [Unknown]
  - Pulmonary mass [Unknown]
  - Nephropathy [Unknown]
  - Wound infection [Unknown]
  - Diarrhoea [Unknown]
  - Haemorrhage [Unknown]
  - Abdominal pain [Unknown]
  - Nephrotic syndrome [Unknown]
  - Asthenia [Unknown]
  - Confusional state [Unknown]
  - Renal failure [Unknown]
  - Dehydration [Unknown]
  - Erythema [Unknown]
  - Anaemia [Unknown]
  - Small intestinal obstruction [Unknown]
  - Stool analysis [Unknown]
  - Bowel movement irregularity [Unknown]
  - Stool analysis abnormal [Unknown]
  - Asthenia [Unknown]
  - Gait disturbance [Unknown]
  - Dyspnoea [Unknown]
  - Dyspnoea [Unknown]
  - Walking disability [Unknown]
  - Fall [Unknown]
  - Adverse event [Unknown]
  - Speech disorder [Unknown]
  - Hypoacusis [Unknown]
  - Dysgraphia [Unknown]
  - Medication error [Unknown]
  - Gait disturbance [Unknown]
  - Fatigue [Unknown]
